FAERS Safety Report 24813160 (Version 2)
Quarter: 2025Q2

REPORT INFORMATION
  Report Type: Spontaneous
  Country: US (occurrence: US)
  Receive Date: 20250107
  Receipt Date: 20250520
  Transmission Date: 20250717
  Serious: No
  Sender: ELI LILLY AND COMPANY
  Company Number: US-ELI_LILLY_AND_COMPANY-US202501002060

PATIENT
  Age: 54 Year
  Sex: Female

DRUGS (1)
  1. VERZENIO [Suspect]
     Active Substance: ABEMACICLIB
     Indication: Breast cancer female
     Dosage: 150 MG, BID
     Route: 048

REACTIONS (4)
  - Dyspnoea [Unknown]
  - Faeces soft [Unknown]
  - Asthenia [Unknown]
  - Diarrhoea [Unknown]
